FAERS Safety Report 23575578 (Version 1)
Quarter: 2024Q1

REPORT INFORMATION
  Report Type: Report from Study
  Country: US (occurrence: US)
  Receive Date: 20240228
  Receipt Date: 20240228
  Transmission Date: 20240410
  Serious: Yes (Hospitalization)
  Sender: FDA-Public Use
  Company Number: US-002147023-NVSC2023US272334

PATIENT
  Sex: Male

DRUGS (2)
  1. KESIMPTA [Suspect]
     Active Substance: OFATUMUMAB
     Indication: Relapsing-remitting multiple sclerosis
     Dosage: UNK (1ST INJECTION)
     Route: 065
  2. KESIMPTA [Suspect]
     Active Substance: OFATUMUMAB
     Dosage: UNK (2ND INJECTION)
     Route: 065

REACTIONS (7)
  - Urinary tract infection [Unknown]
  - Arrhythmia [Unknown]
  - Hypotension [Unknown]
  - Depressed mood [Recovered/Resolved]
  - Asthenia [Unknown]
  - Chills [Unknown]
  - Fatigue [Unknown]
